FAERS Safety Report 6543717-5 (Version None)
Quarter: 2010Q1

REPORT INFORMATION
  Report Type: 
  Country: None (occurrence: None)
  Receive Date: 20100119
  Receipt Date: 20100119
  Transmission Date: 20100710
  Serious: Yes (Other)
  Sender: FDA-Public Use
  Company Number: None

PATIENT
  Age: 55 Year
  Sex: Female
  Weight: 89.3586 kg

DRUGS (2)
  1. TYLENOL [Suspect]
     Indication: ARTHRALGIA
     Dosage: 2 TABS 1000 MG EVERY 4-6 HRS. PRN PO
     Route: 048
     Dates: start: 20091201, end: 20091227
  2. TYLENOL [Suspect]
     Indication: HEADACHE
     Dosage: 2 TABS 1000 MG EVERY 4-6 HRS. PRN PO
     Route: 048
     Dates: start: 20091201, end: 20091227

REACTIONS (3)
  - DIARRHOEA [None]
  - GASTRITIS [None]
  - PAIN [None]
